FAERS Safety Report 18220843 (Version 1)
Quarter: 2020Q3

REPORT INFORMATION
  Report Type: Spontaneous
  Country: IN (occurrence: IN)
  Receive Date: 20200902
  Receipt Date: 20200902
  Transmission Date: 20201103
  Serious: Yes (Other)
  Sender: FDA-Public Use
  Company Number: IN-SA-2020SA225862

PATIENT

DRUGS (8)
  1. PYRAZINAMIDE. [Suspect]
     Active Substance: PYRAZINAMIDE
     Indication: TUBERCULOSIS OF EYE
     Dosage: 1500 MG
  2. RIFAMPICIN [Suspect]
     Active Substance: RIFAMPIN
     Indication: TUBERCULOSIS OF EYE
     Dosage: 600 MG
  3. CORTICOSTEROID NOS [Concomitant]
     Active Substance: CORTICOSTEROID NOS
     Indication: TUBERCULOSIS OF EYE
     Dosage: 1 MG/KG
     Route: 048
  4. CORTICOSTEROID NOS [Concomitant]
     Active Substance: CORTICOSTEROID NOS
     Indication: SUBRETINAL HYPERREFLECTIVE EXUDATION
     Dosage: 1.5 MG/KG, QD
     Route: 048
  5. ETHAMBUTOL [Suspect]
     Active Substance: ETHAMBUTOL HYDROCHLORIDE
     Indication: TUBERCULOSIS OF EYE
     Dosage: 1000 MG
  6. RANIBIZUMAB. [Concomitant]
     Active Substance: RANIBIZUMAB
     Indication: TUBERCULOSIS OF EYE
     Dosage: 0.05 ML OF 10 MG/ML
     Route: 031
  7. ISONIAZID. [Suspect]
     Active Substance: ISONIAZID
     Indication: TUBERCULOSIS OF EYE
     Dosage: 300 MG
  8. RANIBIZUMAB. [Concomitant]
     Active Substance: RANIBIZUMAB
     Indication: SUBRETINAL HYPERREFLECTIVE EXUDATION
     Dosage: 0.05 ML OF 10 MG/ML (SECOND DOSE)
     Route: 031

REACTIONS (3)
  - Subretinal hyperreflective exudation [Recovered/Resolved]
  - Paradoxical drug reaction [Recovered/Resolved]
  - Retinal detachment [Recovered/Resolved]
